FAERS Safety Report 9716010 (Version 3)
Quarter: 2015Q2

REPORT INFORMATION
  Report Type: Spontaneous
  Country: US (occurrence: US)
  Receive Date: 20131127
  Receipt Date: 20150605
  Transmission Date: 20150821
  Serious: Yes (Life-Threatening, Hospitalization)
  Sender: FDA-Public Use
  Company Number: US-BAYER-2013-142844

PATIENT
  Age: 47 Year
  Sex: Female
  Weight: 63.39 kg

DRUGS (10)
  1. AMYLASE W/LIPASE/PROTEASE [Concomitant]
     Active Substance: AMYLASE\LIPASE\PROTEASE
  2. IRON [Concomitant]
     Active Substance: IRON
     Indication: ANAEMIA
     Dosage: UNK
     Route: 048
     Dates: start: 2006
  3. COLACE [Concomitant]
     Active Substance: DOCUSATE SODIUM
  4. NEXIUM [Concomitant]
     Active Substance: ESOMEPRAZOLE MAGNESIUM
     Indication: GASTROOESOPHAGEAL REFLUX DISEASE
     Dosage: UNK
     Route: 048
     Dates: start: 2007
  5. MIRENA [Suspect]
     Active Substance: LEVONORGESTREL
     Indication: MENORRHAGIA
     Dosage: 20 MCG/24HR, CONT
     Route: 015
     Dates: start: 200908, end: 20120702
  6. DOLIPRANE [Concomitant]
     Active Substance: ACETAMINOPHEN
     Indication: LAXATIVE SUPPORTIVE CARE
     Dosage: UNK
     Route: 048
     Dates: start: 2007
  7. NORCO [Concomitant]
     Active Substance: ACETAMINOPHEN\HYDROCODONE BITARTRATE
  8. CREON [PANCREATIN] [Concomitant]
     Route: 048
  9. MOTRIN [Concomitant]
     Active Substance: IBUPROFEN
  10. AMBIEN [Concomitant]
     Active Substance: ZOLPIDEM TARTRATE
     Indication: SLEEP DISORDER THERAPY
     Dosage: UNK
     Route: 048
     Dates: start: 2007

REACTIONS (6)
  - Uterine perforation [None]
  - Abdominal pain lower [None]
  - General physical health deterioration [None]
  - Device issue [None]
  - Injury [None]
  - Pelvic pain [None]

NARRATIVE: CASE EVENT DATE: 201203
